FAERS Safety Report 13448794 (Version 1)
Quarter: 2017Q2

REPORT INFORMATION
  Report Type: Spontaneous
  Country: FR (occurrence: FR)
  Receive Date: 20170417
  Receipt Date: 20170417
  Transmission Date: 20170830
  Serious: Yes (Hospitalization)
  Sender: FDA-Public Use
  Company Number: FR-TEVA-758415ROM

PATIENT
  Age: 26 Year
  Sex: Male

DRUGS (4)
  1. SPASFON (PHLOROGLUCINOL, TRIMETHYLPHLOROGLUCINOL) [Suspect]
     Active Substance: PHLOROGLUCINOL\1,3,5-TRIMETHOXYBENZENE
     Route: 048
     Dates: start: 20170128, end: 20170128
  2. BIPROFENID LP 100 MG [Suspect]
     Active Substance: KETOPROFEN
     Route: 048
     Dates: start: 20170128, end: 20170128
  3. PARACETAMOL [Suspect]
     Active Substance: ACETAMINOPHEN
     Indication: PAIN
     Route: 048
     Dates: start: 20170128, end: 20170128
  4. PARACETAMOL CODEINE [Suspect]
     Active Substance: ACETAMINOPHEN\CODEINE PHOSPHATE
     Indication: PAIN
     Route: 048
     Dates: start: 20170128, end: 20170128

REACTIONS (1)
  - Prothrombin level decreased [Recovered/Resolved]

NARRATIVE: CASE EVENT DATE: 20170128
